FAERS Safety Report 17305670 (Version 2)
Quarter: 2021Q4

REPORT INFORMATION
  Report Type: Spontaneous
  Country: IT (occurrence: IT)
  Receive Date: 20200123
  Receipt Date: 20211124
  Transmission Date: 20220303
  Serious: Yes (Hospitalization, Other)
  Sender: FDA-Public Use
  Company Number: IT-CHEPLA-C20192849

PATIENT
  Age: 55 Year
  Sex: Female

DRUGS (12)
  1. CEFTRIAXONE [Suspect]
     Active Substance: CEFTRIAXONE
     Indication: Antibiotic therapy
     Dosage: UNK
     Route: 065
  2. GANCICLOVIR [Suspect]
     Active Substance: GANCICLOVIR
     Indication: Roseolovirus test positive
     Dosage: UNK
     Route: 065
  3. LEVOFLOXACIN [Suspect]
     Active Substance: LEVOFLOXACIN
     Indication: Antibiotic therapy
     Dosage: UNK
     Route: 065
  4. PANTOPRAZOLE [Concomitant]
     Active Substance: PANTOPRAZOLE
     Indication: Product used for unknown indication
     Dosage: UNK
     Route: 065
  5. OLMESARTAN [Concomitant]
     Active Substance: OLMESARTAN
     Indication: Product used for unknown indication
     Dosage: UNK
     Route: 065
  6. SERTRALINE [Concomitant]
     Active Substance: SERTRALINE HYDROCHLORIDE
     Indication: Product used for unknown indication
     Dosage: UNK
     Route: 065
  7. ROSUVASTATIN [Concomitant]
     Active Substance: ROSUVASTATIN
     Indication: Product used for unknown indication
     Dosage: UNK
     Route: 065
  8. BETAHISTINE [Concomitant]
     Active Substance: BETAHISTINE
     Indication: Product used for unknown indication
     Dosage: UNK
     Route: 065
  9. BIPERIDEN [Concomitant]
     Active Substance: BIPERIDEN
     Indication: Product used for unknown indication
     Dosage: UNK
  10. FENOFIBRATE [Concomitant]
     Active Substance: FENOFIBRATE
     Indication: Product used for unknown indication
     Dosage: UNK
     Route: 065
  11. POLYETHYLENE GLYCOLS [Concomitant]
     Active Substance: POLYETHYLENE GLYCOLS
     Indication: Product used for unknown indication
     Dosage: UNK
     Route: 065
  12. DELORAZEPAM [Concomitant]
     Active Substance: DELORAZEPAM
     Indication: Product used for unknown indication
     Dosage: UNK
     Route: 065

REACTIONS (5)
  - Myelosuppression [Recovering/Resolving]
  - Hypomagnesaemia [Recovered/Resolved]
  - Hypokalaemia [Recovered/Resolved]
  - Renal failure [Unknown]
  - Product use in unapproved indication [Recovered/Resolved]
